FAERS Safety Report 6755716-9 (Version None)
Quarter: 2010Q2

REPORT INFORMATION
  Report Type: 
  Country: None (occurrence: None)
  Receive Date: 20100604
  Receipt Date: 20100525
  Transmission Date: 20101027
  Serious: Yes (Other)
  Sender: FDA-Public Use
  Company Number: JP-PFIZER INC-2010060939

PATIENT
  Age: 73 Year
  Sex: Male
  Weight: 59 kg

DRUGS (26)
  1. CAMPTOSAR [Suspect]
     Indication: COLON CANCER
     Dosage: 200 MG, (127.4 MG/M2)
     Route: 041
     Dates: start: 20090309, end: 20090923
  2. CAMPTOSAR [Suspect]
     Dosage: 250 MG, (159.2 MG/M2)
     Route: 041
     Dates: start: 20090406, end: 20090406
  3. CAMPTOSAR [Suspect]
     Dosage: 200 MG, (127.4 MG/M2)
     Route: 041
     Dates: start: 20090421, end: 20090610
  4. CAMPTOSAR [Suspect]
     Dosage: 240 MG, (152.9 MG/M2)
     Route: 041
     Dates: start: 20090909, end: 20091217
  5. FLUOROURACIL [Suspect]
     Indication: COLON CANCER
     Dosage: 540 MG, (343.9 MG/M2)
     Route: 040
     Dates: start: 20090309, end: 20090323
  6. FLUOROURACIL [Suspect]
     Dosage: 3200 MG, (2038.2 MG/M2)
     Route: 041
     Dates: start: 20090309, end: 20090323
  7. FLUOROURACIL [Suspect]
     Dosage: 680 MG, (433.1 MG/M2)
     Route: 040
     Dates: start: 20090406, end: 20090406
  8. FLUOROURACIL [Suspect]
     Dosage: 4100 MG, (2611.5 MG/M2)
     Route: 041
     Dates: start: 20090406, end: 20090406
  9. FLUOROURACIL [Suspect]
     Dosage: 540 MG, (343.9 MG/M2)
     Route: 040
     Dates: start: 20090421, end: 20090610
  10. FLUOROURACIL [Suspect]
     Dosage: 3200 MG, (2038.2 MG/M2)
     Route: 041
     Dates: start: 20090421, end: 20090610
  11. FLUOROURACIL [Suspect]
     Dosage: 670 MG, UNK
     Route: 040
     Dates: start: 20090723, end: 20090806
  12. FLUOROURACIL [Suspect]
     Dosage: 4000 MG, UNK
     Route: 041
     Dates: start: 20090723, end: 20090806
  13. CALCIUM LEVOFOLINATE [Concomitant]
     Indication: COLON CANCER
     Dosage: 275 MG, (175.2 MG/M2)
     Route: 041
     Dates: start: 20090309, end: 20090323
  14. CALCIUM LEVOFOLINATE [Concomitant]
     Dosage: 340 MG, (216.6 MG/M2)
     Route: 041
     Dates: start: 20090406, end: 20090406
  15. CALCIUM LEVOFOLINATE [Concomitant]
     Dosage: 275 MG, (175.2 MG/M2)
     Route: 041
     Dates: start: 20090421, end: 20090610
  16. CALCIUM LEVOFOLINATE [Concomitant]
     Dosage: 330 MG, UNK
     Route: 041
     Dates: start: 20090723, end: 20090806
  17. DECADRON #1 [Concomitant]
     Indication: PREMEDICATION
     Dosage: 6.6 MG, UNK
     Route: 041
     Dates: start: 20090309, end: 20091217
  18. KYTRIL [Concomitant]
     Indication: PREMEDICATION
     Dosage: 3 MG, UNK
     Route: 041
     Dates: start: 20090309, end: 20091217
  19. VALSARTAN [Concomitant]
     Indication: HYPERTENSION
     Dosage: 80 MG, UNK
     Route: 048
     Dates: start: 20070110
  20. ISOSORBIDE MONONITRATE [Concomitant]
     Indication: ANGINA PECTORIS
     Dosage: 20 MG, 2X/DAY
     Route: 048
     Dates: start: 20080203
  21. BAYASPIRIN [Concomitant]
     Indication: ANGINA PECTORIS
     Dosage: 100 MG, UNK
     Route: 048
     Dates: start: 20080221
  22. ELIETEN [Concomitant]
     Indication: PREMEDICATION
     Dosage: UNK
     Dates: start: 20090201
  23. CARBENIN [Concomitant]
     Indication: STOMATITIS
     Dosage: 0.5 G, UNK
     Route: 041
     Dates: start: 20091226, end: 20100104
  24. BIOFERMIN R [Concomitant]
     Dosage: UNK,3X/DAY
     Route: 048
  25. LOPERAMIDE HYDROCHLORIDE [Concomitant]
     Route: 048
  26. CODEINE PHOSPHATE [Concomitant]
     Route: 048

REACTIONS (3)
  - DIARRHOEA [None]
  - PERITONITIS [None]
  - STOMATITIS [None]
